FAERS Safety Report 23249273 (Version 1)
Quarter: 2023Q4

REPORT INFORMATION
  Report Type: Report from Study
  Country: AU (occurrence: AU)
  Receive Date: 20231201
  Receipt Date: 20231201
  Transmission Date: 20240110
  Serious: Yes (Other)
  Sender: FDA-Public Use
  Company Number: AU-ORPHANEU-2023008266

PATIENT

DRUGS (1)
  1. ISTURISA [Suspect]
     Active Substance: OSILODROSTAT PHOSPHATE
     Indication: Product used for unknown indication
     Dosage: 4 MILLIGRAM, BID
     Route: 065
     Dates: start: 202303

REACTIONS (1)
  - Adrenal insufficiency [Unknown]

NARRATIVE: CASE EVENT DATE: 20230101
